FAERS Safety Report 23455703 (Version 1)
Quarter: 2024Q1

REPORT INFORMATION
  Report Type: Spontaneous
  Country: US (occurrence: US)
  Receive Date: 20240130
  Receipt Date: 20240130
  Transmission Date: 20240410
  Serious: No
  Sender: FDA-Public Use
  Company Number: US-STRIDES ARCOLAB LIMITED-2023SP014678

PATIENT
  Age: 37 Year
  Sex: Female

DRUGS (20)
  1. METHOTREXATE [Suspect]
     Active Substance: METHOTREXATE
     Indication: Ocular lymphoma
     Dosage: UNK (0.4MG/0.1ML INJECTIONS MONTHLY IN RIGHT EYE)
  2. VANCOMYCIN [Suspect]
     Active Substance: VANCOMYCIN
     Indication: Endophthalmitis
     Dosage: UNK
     Route: 065
  3. VANCOMYCIN [Suspect]
     Active Substance: VANCOMYCIN
     Dosage: UNK
     Route: 065
  4. VANCOMYCIN [Suspect]
     Active Substance: VANCOMYCIN
     Dosage: UNK
     Route: 065
  5. TEMOZOLOMIDE [Suspect]
     Active Substance: TEMOZOLOMIDE
     Indication: Ocular lymphoma
     Dosage: UNK
     Route: 065
  6. RITUXIMAB [Suspect]
     Active Substance: RITUXIMAB
     Indication: Ocular lymphoma
     Dosage: UNK
     Route: 065
  7. PREDNISOLONE ACETATE [Suspect]
     Active Substance: PREDNISOLONE ACETATE
     Indication: Cystoid macular oedema
     Dosage: UNK, BID
     Route: 065
  8. PREDNISOLONE ACETATE [Suspect]
     Active Substance: PREDNISOLONE ACETATE
     Dosage: UNK, EVERY 2 HRS
     Route: 065
  9. ADALIMUMAB [Suspect]
     Active Substance: ADALIMUMAB\ISOPROPYL ALCOHOL
     Indication: Uveitis
     Dosage: 40 MILLIGRAM BIWEEKLY
     Route: 058
  10. ADALIMUMAB [Suspect]
     Active Substance: ADALIMUMAB\ISOPROPYL ALCOHOL
     Dosage: UNK (WEEKLY)
     Route: 065
  11. TRIAMCINOLONE ACETONIDE [Suspect]
     Active Substance: TRIAMCINOLONE ACETONIDE
     Indication: Cystoid macular oedema
     Dosage: 2 MILLIGRAM
  12. TRIAMCINOLONE ACETONIDE [Suspect]
     Active Substance: TRIAMCINOLONE ACETONIDE
     Dosage: UNK (KENALOG-40 ) (POSTERIOR SUB-TENON^S)
     Route: 050
  13. TRIAMCINOLONE ACETONIDE [Suspect]
     Active Substance: TRIAMCINOLONE ACETONIDE
     Dosage: UNK (TRIESENCE)
     Route: 065
  14. YUTIQ [Suspect]
     Active Substance: FLUOCINOLONE ACETONIDE
     Indication: Uveitis
     Dosage: 0.19 MILLIGRAM (INSERT)
     Route: 065
     Dates: start: 2009
  15. CEFTAZIDIME [Suspect]
     Active Substance: CEFTAZIDIME
     Indication: Endophthalmitis
     Dosage: UNK
     Route: 065
  16. CEFTAZIDIME [Suspect]
     Active Substance: CEFTAZIDIME
     Dosage: UNK
     Route: 065
  17. CEFTAZIDIME [Suspect]
     Active Substance: CEFTAZIDIME
     Dosage: UNK
     Route: 065
  18. VORICONAZOLE [Suspect]
     Active Substance: VORICONAZOLE
     Indication: Endophthalmitis
     Dosage: UNK
     Route: 065
  19. VORICONAZOLE [Suspect]
     Active Substance: VORICONAZOLE
     Dosage: UNK
     Route: 065
  20. VORICONAZOLE [Suspect]
     Active Substance: VORICONAZOLE
     Dosage: UNK
     Route: 065

REACTIONS (2)
  - Maternal exposure during pregnancy [Unknown]
  - Off label use [Unknown]
